FAERS Safety Report 4345764-0 (Version None)
Quarter: 2004Q2

REPORT INFORMATION
  Report Type: 
  Country: None (occurrence: None)
  Receive Date: 20040421
  Receipt Date: 20040405
  Transmission Date: 20050107
  Serious: Yes (Hospitalization)
  Sender: FDA-Public Use
  Company Number: 6008290

PATIENT
  Age: 56 Year
  Sex: Female

DRUGS (8)
  1. LEVOTHYROXINE SODIUM [Suspect]
     Dosage: ORAL
     Route: 048
     Dates: start: 19960101
  2. ZOCOR [Suspect]
     Dosage: ORAL
     Route: 048
     Dates: start: 20010101
  3. MOSIL (MIDECAMYCIN) [Concomitant]
  4. SILOMAT (CLOBUTINOL HYDROCHLORIDE) [Concomitant]
  5. MUCOMYST [Concomitant]
  6. LYSOPAINE (BACITRACIN, LYSOZYME, PAPAIN) [Concomitant]
  7. UTEPLEX (URIDINE TRIPHOSPHATE SODIUIM) [Concomitant]
  8. ACETAMINOPHEN [Concomitant]

REACTIONS (9)
  - ANGINA PECTORIS [None]
  - BLOOD BICARBONATE ABNORMAL [None]
  - CYTOLYTIC HEPATITIS [None]
  - GAMMA-GLUTAMYLTRANSFERASE INCREASED [None]
  - PRURITUS [None]
  - PYREXIA [None]
  - RASH ERYTHEMATOUS [None]
  - RASH MACULO-PAPULAR [None]
  - URTICARIA [None]
